FAERS Safety Report 8294578 (Version 3)
Quarter: 2012Q4

REPORT INFORMATION
  Report Type: Report from Study
  Country: FR (occurrence: FR)
  Receive Date: 20111216
  Receipt Date: 20120905
  Transmission Date: 20130627
  Serious: Yes (Death, Life-Threatening, Hospitalization, Other)
  Sender: FDA-Public Use
  Company Number: PHHY2011FR099306

PATIENT
  Age: 79 Year
  Sex: Male
  Weight: 95 kg

DRUGS (4)
  1. EVEROLIMUS [Suspect]
     Indication: RENAL CANCER METASTATIC
     Dosage: 10 mg, daily
     Dates: start: 20111017, end: 20111107
  2. LOXEN [Concomitant]
     Indication: HYPERTENSION
     Dosage: 50 mg, BID
  3. HYZAAR [Concomitant]
     Indication: HYPERTENSION
     Dosage: 1 DF, (12.5/50mg) daily
     Dates: start: 201007
  4. LASILIX [Concomitant]
     Indication: OEDEMA
     Dosage: 20 mg, BID
     Dates: start: 201107

REACTIONS (4)
  - Respiratory disorder [Fatal]
  - Oxygen saturation decreased [Fatal]
  - Thrombocytopenia [Recovering/Resolving]
  - Convulsion [Unknown]
